FAERS Safety Report 12356654 (Version 1)
Quarter: 2016Q2

REPORT INFORMATION
  Report Type: Spontaneous
  Country: FR (occurrence: FR)
  Receive Date: 20160511
  Receipt Date: 20160511
  Transmission Date: 20160815
  Serious: Yes (Hospitalization)
  Sender: FDA-Public Use
  Company Number: FR-PFIZER INC-2016245045

PATIENT
  Age: 55 Year
  Sex: Female

DRUGS (12)
  1. NOCTAMIDE [Interacting]
     Active Substance: LORMETAZEPAM
     Dosage: UNK, SINGLE SUPPOSED INGESTED DOSE: THREE PACKS
     Route: 048
     Dates: start: 20160312, end: 20160312
  2. HAVLANE [Interacting]
     Active Substance: LOPRAZOLAM
     Dosage: UNK
     Route: 048
     Dates: start: 20160313
  3. LEXOMIL [Interacting]
     Active Substance: BROMAZEPAM
     Dosage: UNK
     Route: 048
     Dates: start: 20160313
  4. LEXOMIL [Interacting]
     Active Substance: BROMAZEPAM
     Dosage: UNK
     Route: 048
     Dates: end: 20160311
  5. EFFEXOR LP [Interacting]
     Active Substance: VENLAFAXINE HYDROCHLORIDE
     Dosage: UNK, SINGLE SUPPOSED INGESTED DOSE: ONE PACK
     Route: 048
     Dates: start: 20160312, end: 20160312
  6. EFFEXOR LP [Interacting]
     Active Substance: VENLAFAXINE HYDROCHLORIDE
     Dosage: UNK
     Route: 048
     Dates: start: 20160313
  7. NOCTAMIDE [Interacting]
     Active Substance: LORMETAZEPAM
     Dosage: UNK
     Route: 048
     Dates: start: 20160313
  8. HAVLANE [Interacting]
     Active Substance: LOPRAZOLAM
     Dosage: UNK
     Route: 048
     Dates: end: 20160311
  9. HAVLANE [Interacting]
     Active Substance: LOPRAZOLAM
     Dosage: UNK, SINGLE SUPPOSED INGESTED DOSE: ONE PACK
     Route: 048
     Dates: start: 20160312, end: 20160312
  10. LEXOMIL [Interacting]
     Active Substance: BROMAZEPAM
     Dosage: 150 MG (6 MG X 25), SINGLE
     Route: 048
     Dates: start: 20160312, end: 20160312
  11. EFFEXOR LP [Suspect]
     Active Substance: VENLAFAXINE HYDROCHLORIDE
     Dosage: UNK
     Route: 048
     Dates: end: 20160311
  12. NOCTAMIDE [Interacting]
     Active Substance: LORMETAZEPAM
     Dosage: UNK
     Route: 048
     Dates: end: 20160311

REACTIONS (4)
  - Hypotension [Recovered/Resolved]
  - Somnolence [Recovered/Resolved]
  - Alcohol interaction [Recovered/Resolved]
  - Poisoning deliberate [Unknown]

NARRATIVE: CASE EVENT DATE: 20160312
